FAERS Safety Report 6397070-0 (Version None)
Quarter: 2009Q4

REPORT INFORMATION
  Report Type: 
  Country: None (occurrence: None)
  Receive Date: 20091008
  Receipt Date: 20091008
  Transmission Date: 20100525
  Serious: Yes (Life-Threatening, Other)
  Sender: FDA-Public Use
  Company Number: None

PATIENT
  Age: 47 Year
  Sex: Female
  Weight: 61.6892 kg

DRUGS (1)
  1. PROAIR HFA [Suspect]
     Indication: ASTHMA
     Dosage: 1 METERED DOSE ONE A DAY USUALLY
     Dates: start: 20080101, end: 20091007

REACTIONS (6)
  - ASTHMA [None]
  - CONDITION AGGRAVATED [None]
  - DEVICE MALFUNCTION [None]
  - DEVICE OCCLUSION [None]
  - PRODUCT QUALITY ISSUE [None]
  - PRODUCT SUBSTITUTION ISSUE [None]
